FAERS Safety Report 5990453-X (Version None)
Quarter: 2008Q4

REPORT INFORMATION
  Report Type: 
  Country: None (occurrence: None)
  Receive Date: 20081209
  Receipt Date: 20081201
  Transmission Date: 20090506
  Serious: Yes (Hospitalization, Other)
  Sender: FDA-Public Use
  Company Number: 2008SP019206

PATIENT
  Age: 53 Year
  Sex: Male
  Weight: 115.2136 kg

DRUGS (4)
  1. PEG-INTRON [Suspect]
     Indication: HEPATITIS C
     Dosage: 150 MCG; SC
     Route: 058
     Dates: start: 20070411
  2. PEG-INTRON [Suspect]
     Indication: HEPATITIS C
     Dosage: 150 MCG; SC
     Route: 058
     Dates: start: 20080313
  3. RIBAVIRIN [Suspect]
     Dosage: 600 MG, BID, PO
     Route: 048
     Dates: start: 20070411
  4. RIBAVIRIN [Suspect]
     Dosage: 600 MG, BID, PO
     Route: 048
     Dates: start: 20080313

REACTIONS (6)
  - HYPERHIDROSIS [None]
  - PARAESTHESIA [None]
  - PERIPHERAL NERVE INJURY [None]
  - THROMBOSIS [None]
  - WEIGHT DECREASED [None]
  - WHITE BLOOD CELL COUNT DECREASED [None]
